FAERS Safety Report 8515375-1 (Version None)
Quarter: 2012Q3

REPORT INFORMATION
  Report Type: 
  Country: None (occurrence: None)
  Receive Date: 20120717
  Receipt Date: 20120703
  Transmission Date: 20120928
  Serious: Yes (Other)
  Sender: FDA-Public Use
  Company Number: US-ELI_LILLY_AND_COMPANY-US201207002054

PATIENT
  Sex: Male

DRUGS (4)
  1. CYMBALTA [Suspect]
     Indication: NEURALGIA
     Dosage: 60 MG, BID
     Dates: start: 20101101
  2. LYRICA [Concomitant]
  3. OXYCODONE HCL [Concomitant]
     Dosage: UNK
  4. GABAPENTIN [Concomitant]

REACTIONS (5)
  - OFF LABEL USE [None]
  - LIP EXFOLIATION [None]
  - TONGUE EXFOLIATION [None]
  - SKIN EXFOLIATION [None]
  - ORAL MUCOSAL EXFOLIATION [None]
